FAERS Safety Report 9022103 (Version 2)
Quarter: 2013Q1

REPORT INFORMATION
  Report Type: Report from Study
  Country: CA (occurrence: CA)
  Receive Date: 20130118
  Receipt Date: 20130123
  Transmission Date: 20140127
  Serious: Yes (Other)
  Sender: FDA-Public Use
  Company Number: CA-GLAXOSMITHKLINE-A0973125A

PATIENT
  Age: 41 None
  Sex: Female
  Weight: 76 kg

DRUGS (7)
  1. BENLYSTA [Suspect]
     Indication: SYSTEMIC LUPUS ERYTHEMATOSUS
     Dosage: 770MG MONTHLY
     Route: 042
     Dates: start: 20120118
  2. OXYCONTIN [Concomitant]
     Indication: SYSTEMIC LUPUS ERYTHEMATOSUS
     Dosage: 10MG THREE TIMES PER DAY
     Route: 048
     Dates: start: 20070901
  3. NEXIUM [Concomitant]
     Indication: PROPHYLAXIS
     Dosage: 40MG THREE TIMES PER DAY
     Route: 048
     Dates: start: 2011, end: 20120412
  4. MELOXICAM [Concomitant]
     Indication: SYSTEMIC LUPUS ERYTHEMATOSUS
     Dosage: 7.5MG THREE TIMES PER DAY
     Route: 048
     Dates: start: 20110101, end: 20120412
  5. FLUCONAZOLE [Concomitant]
     Indication: CANDIDA INFECTION
     Dosage: 10MG THREE TIMES PER DAY
     Route: 048
     Dates: start: 2009
  6. IBUPROFEN [Concomitant]
     Indication: SYSTEMIC LUPUS ERYTHEMATOSUS
     Dosage: 600MG THREE TIMES PER DAY
     Route: 048
     Dates: start: 2008
  7. MODAFINIL [Concomitant]
     Indication: NARCOLEPSY
     Dosage: 100MG AS REQUIRED
     Route: 048
     Dates: start: 2004, end: 201111

REACTIONS (20)
  - Lymphadenopathy [Not Recovered/Not Resolved]
  - Neoplasm malignant [Unknown]
  - Thyroid neoplasm [Not Recovered/Not Resolved]
  - Anxiety [Not Recovered/Not Resolved]
  - Hallucination [Recovered/Resolved]
  - Pyrexia [Recovered/Resolved]
  - Abdominal pain upper [Recovered/Resolved]
  - Abdominal distension [Recovered/Resolved]
  - Hepatic enzyme increased [Recovered/Resolved]
  - Nausea [Unknown]
  - Ill-defined disorder [Not Recovered/Not Resolved]
  - Nasopharyngitis [Not Recovered/Not Resolved]
  - Pleurisy [Unknown]
  - Pneumonia [Recovered/Resolved]
  - Chest discomfort [Recovered/Resolved]
  - Musculoskeletal pain [Recovered/Resolved]
  - Hypopnoea [Recovered/Resolved]
  - Upper respiratory tract infection [Recovered/Resolved]
  - Suicidal ideation [Recovered/Resolved]
  - Ill-defined disorder [Recovered/Resolved]
